FAERS Safety Report 25437568 (Version 1)
Quarter: 2025Q2

REPORT INFORMATION
  Report Type: Spontaneous
  Country: CA (occurrence: CA)
  Receive Date: 20250616
  Receipt Date: 20250616
  Transmission Date: 20250716
  Serious: Yes (Other)
  Sender: NOVO NORDISK
  Company Number: CA-NOVOPROD-1455531

PATIENT
  Age: 67 Year

DRUGS (3)
  1. NOVORAPID [Suspect]
     Active Substance: INSULIN ASPART
     Indication: Diabetes mellitus
  2. NOVORAPID [Suspect]
     Active Substance: INSULIN ASPART
  3. LEVEMIR [Suspect]
     Active Substance: INSULIN DETEMIR
     Indication: Diabetes mellitus

REACTIONS (3)
  - Toe amputation [Unknown]
  - Eye disorder [Unknown]
  - Limb discomfort [Unknown]
